FAERS Safety Report 6436470-7 (Version None)
Quarter: 2009Q4

REPORT INFORMATION
  Report Type: 
  Country: None (occurrence: None)
  Receive Date: 20091110
  Receipt Date: 20091110
  Transmission Date: 20100525
  Serious: Yes (Hospitalization)
  Sender: FDA-Public Use
  Company Number: None

PATIENT
  Age: 84 Year
  Sex: Male

DRUGS (9)
  1. TRAZODONE HCL [Suspect]
     Dosage: 50 MG HS PRN PO
     Route: 048
  2. ASPIRIN [Concomitant]
  3. ALBUTEROL [Concomitant]
  4. AVODART [Concomitant]
  5. SPIRIVA [Concomitant]
  6. LOVASTATIN [Concomitant]
  7. ADVAIR DISKUS 100/50 [Concomitant]
  8. METOPROLOL TARTRATE [Concomitant]
  9. LACTULOSE [Concomitant]

REACTIONS (1)
  - LOSS OF CONSCIOUSNESS [None]
